FAERS Safety Report 16784897 (Version 1)
Quarter: 2019Q3

REPORT INFORMATION
  Report Type: Spontaneous
  Country: US (occurrence: US)
  Receive Date: 20190909
  Receipt Date: 20190909
  Transmission Date: 20191005
  Serious: No
  Sender: FDA-Public Use
  Company Number: US-BAYER-2019-164741

PATIENT
  Age: 89 Year
  Sex: Male
  Weight: 51 kg

DRUGS (5)
  1. MIRALAX [Suspect]
     Active Substance: POLYETHYLENE GLYCOL 3350
     Indication: GASTROINTESTINAL DISORDER
     Dosage: UNK
     Route: 048
     Dates: start: 20190903, end: 20190905
  2. TRAMADOL. [Concomitant]
     Active Substance: TRAMADOL
  3. MIRALAX [Suspect]
     Active Substance: POLYETHYLENE GLYCOL 3350
     Indication: GASTROINTESTINAL DISORDER
     Dosage: UNK
     Route: 048
     Dates: start: 20190506
  4. ATORVASTATIN [Concomitant]
     Active Substance: ATORVASTATIN
  5. VITAMINS NOS [Concomitant]
     Active Substance: VITAMINS

REACTIONS (3)
  - Expired product administered [Unknown]
  - Expired product administered [Recovered/Resolved]
  - Drug ineffective [Unknown]

NARRATIVE: CASE EVENT DATE: 20190506
